FAERS Safety Report 8124030-1 (Version None)
Quarter: 2012Q1

REPORT INFORMATION
  Report Type: 
  Country: None (occurrence: None)
  Receive Date: 20120209
  Receipt Date: 20120203
  Transmission Date: 20120608
  Serious: No
  Sender: FDA-Public Use
  Company Number: US-PFIZER INC-2012018493

PATIENT
  Sex: Male

DRUGS (4)
  1. PRILOSEC [Concomitant]
     Indication: OESOPHAGEAL DISORDER
  2. TOVIAZ [Suspect]
     Dosage: 8 MG, 1X/DAY
  3. PRILOSEC [Concomitant]
     Indication: GASTROOESOPHAGEAL REFLUX DISEASE
     Dosage: UNK
  4. TOVIAZ [Suspect]
     Dosage: 4 MG, 2X/DAY

REACTIONS (4)
  - CONSTIPATION [None]
  - DRY MOUTH [None]
  - POLLAKIURIA [None]
  - GASTROOESOPHAGEAL REFLUX DISEASE [None]
